FAERS Safety Report 7125260-8 (Version None)
Quarter: 2010Q4

REPORT INFORMATION
  Report Type: 
  Country: None (occurrence: None)
  Receive Date: 20101112
  Receipt Date: 20100902
  Transmission Date: 20110411
  Serious: Yes (Hospitalization)
  Sender: FDA-Public Use
  Company Number: IT-2010-1733

PATIENT
  Age: 58 Year
  Sex: Male

DRUGS (4)
  1. NAVELBINE [Suspect]
     Indication: LUNG NEOPLASM MALIGNANT
     Dosage: 50 MG QD IV
     Route: 042
     Dates: start: 20100623, end: 20100623
  2. CARBOPLATIN [Suspect]
     Indication: LUNG NEOPLASM MALIGNANT
     Dosage: 480 MG QD IV
     Route: 042
     Dates: start: 20100623, end: 20100623
  3. SOLDESAM [Concomitant]
  4. OMEPRAZOLE [Concomitant]

REACTIONS (9)
  - ANAEMIA [None]
  - ARTHRITIS [None]
  - DIARRHOEA [None]
  - DYSPNOEA [None]
  - LUNG INFECTION PSEUDOMONAL [None]
  - NEUTROPENIA [None]
  - ORAL HERPES [None]
  - STRANGURY [None]
  - URINARY INCONTINENCE [None]
